FAERS Safety Report 4931464-2 (Version None)
Quarter: 2006Q1

REPORT INFORMATION
  Report Type: 
  Country: None (occurrence: None)
  Receive Date: 20060228
  Receipt Date: 20060215
  Transmission Date: 20060701
  Serious: Yes (Disabling, Other)
  Sender: FDA-Public Use
  Company Number: 2006023990

PATIENT
  Sex: Female

DRUGS (4)
  1. CELEBREX [Suspect]
     Indication: PAIN
     Dosage: 1 IN 1 D
     Dates: start: 19860101
  2. ATENOLOL [Concomitant]
  3. DYAZIDE [Concomitant]
  4. DIURETICS (DIURETICS) [Concomitant]

REACTIONS (5)
  - BLADDER PROLAPSE [None]
  - DIFFICULTY IN WALKING [None]
  - OOPHORECTOMY [None]
  - RECTAL PROLAPSE [None]
  - STAPHYLOCOCCAL INFECTION [None]
